FAERS Safety Report 12374894 (Version 3)
Quarter: 2018Q2

REPORT INFORMATION
  Report Type: Spontaneous
  Country: DK (occurrence: DK)
  Receive Date: 20160517
  Receipt Date: 20180425
  Transmission Date: 20180711
  Serious: Yes (Other)
  Sender: FDA-Public Use
  Company Number: PHHY2016DK066932

PATIENT
  Age: 61 Year
  Sex: Female

DRUGS (1)
  1. ZOLEDRONATE [Suspect]
     Active Substance: ZOLEDRONIC ACID
     Indication: RENAL CANCER
     Dosage: UNK (HIGH DOSE)
     Route: 065

REACTIONS (4)
  - Osteonecrosis of jaw [Not Recovered/Not Resolved]
  - Product use in unapproved indication [Unknown]
  - Disease recurrence [Unknown]
  - Exposed bone in jaw [Unknown]
